FAERS Safety Report 5010666-3 (Version None)
Quarter: 2006Q2

REPORT INFORMATION
  Report Type: 
  Country: None (occurrence: None)
  Receive Date: 20060525
  Receipt Date: 20030117
  Transmission Date: 20061013
  Serious: Yes (Hospitalization, Other)
  Sender: FDA-Public Use
  Company Number: PHFR2003IE00600

PATIENT
  Age: 17 Year
  Sex: Female

DRUGS (3)
  1. CLOZARIL [Suspect]
     Indication: SCHIZOPHRENIA
     Dosage: 275 MG/DAY
     Route: 048
     Dates: end: 20060425
  2. CLOZARIL [Suspect]
     Dosage: 12.5 MG, BID
     Route: 048
  3. CLOZARIL [Suspect]
     Dosage: 37.50MG/DAY
     Route: 048
     Dates: start: 20030114

REACTIONS (10)
  - BLOOD PRESSURE INCREASED [None]
  - DRUG LEVEL ABOVE THERAPEUTIC [None]
  - HYPERTENSION [None]
  - HYPOTENSION [None]
  - LISTLESS [None]
  - OVERWEIGHT [None]
  - SEDATION [None]
  - SOMNOLENCE [None]
  - TACHYCARDIA [None]
  - WHITE BLOOD CELL COUNT DECREASED [None]
